FAERS Safety Report 8969507 (Version 3)
Quarter: 2013Q2

REPORT INFORMATION
  Report Type: Spontaneous
  Country: GB (occurrence: GB)
  Receive Date: 20121217
  Receipt Date: 20130607
  Transmission Date: 20140414
  Serious: Yes (Other)
  Sender: FDA-Public Use
  Company Number: PHHY2012GB114459

PATIENT
  Sex: Male

DRUGS (2)
  1. SIMVASTATIN [Suspect]
     Indication: BLOOD CHOLESTEROL INCREASED
     Dosage: 40 MG, QD
     Route: 048
     Dates: start: 20071019
  2. FURANOCOUMARINS [Interacting]

REACTIONS (3)
  - Atrial tachycardia [Unknown]
  - Muscle spasms [Unknown]
  - Drug interaction [Unknown]
